FAERS Safety Report 15897393 (Version 2)
Quarter: 2020Q3

REPORT INFORMATION
  Report Type: Spontaneous
  Country: US (occurrence: US)
  Receive Date: 20190131
  Receipt Date: 20200831
  Transmission Date: 20201102
  Serious: Yes (Other)
  Sender: FDA-Public Use
  Company Number: US-GILEAD-2019-0387829

PATIENT
  Age: 58 Year
  Sex: Male
  Weight: 72.56 kg

DRUGS (44)
  1. VIRACEPT [Concomitant]
     Active Substance: NELFINAVIR MESYLATE
  2. IBUPROFEN. [Concomitant]
     Active Substance: IBUPROFEN
  3. LISINOPRIL. [Concomitant]
     Active Substance: LISINOPRIL
  4. INDOMETHACIN [INDOMETACIN] [Concomitant]
     Active Substance: INDOMETHACIN
  5. FLUTICASONE. [Concomitant]
     Active Substance: FLUTICASONE
  6. CLONAZEPAM. [Concomitant]
     Active Substance: CLONAZEPAM
  7. EPIVIR [Concomitant]
     Active Substance: LAMIVUDINE
  8. LORTAB [LORATADINE] [Concomitant]
     Active Substance: LORATADINE
  9. CELECOXIB. [Concomitant]
     Active Substance: CELECOXIB
  10. OXYCODONE [Concomitant]
     Active Substance: OXYCODONE
  11. CELEBREX [Concomitant]
     Active Substance: CELECOXIB
  12. GABAPENTIN. [Concomitant]
     Active Substance: GABAPENTIN
  13. LIVALO [Concomitant]
     Active Substance: PITAVASTATIN CALCIUM
  14. STRIBILD [Suspect]
     Active Substance: COBICISTAT\ELVITEGRAVIR\EMTRICITABINE\TENOFOVIR DISOPROXIL FUMARATE
     Indication: HIV INFECTION
     Dosage: UNK
     Route: 048
     Dates: start: 2001
  15. NEURONTIN [Concomitant]
     Active Substance: GABAPENTIN
  16. LYRICA [Concomitant]
     Active Substance: PREGABALIN
  17. ACYCLOVIR [ACICLOVIR] [Concomitant]
     Active Substance: ACYCLOVIR
  18. ALLEGRA [Concomitant]
     Active Substance: FEXOFENADINE HYDROCHLORIDE
  19. HYDROCODONE [Concomitant]
     Active Substance: HYDROCODONE
  20. BACLOFEN. [Concomitant]
     Active Substance: BACLOFEN
  21. PRAVASTATIN. [Concomitant]
     Active Substance: PRAVASTATIN
  22. DIAZEPAM. [Concomitant]
     Active Substance: DIAZEPAM
  23. VITAMIN D [VITAMIN D NOS] [Concomitant]
     Active Substance: VITAMIN D NOS
  24. ASPIRIN 81 [Concomitant]
     Active Substance: ASPIRIN
  25. BACTRIM DS [Concomitant]
     Active Substance: SULFAMETHOXAZOLE\TRIMETHOPRIM
  26. LIPITOR [Concomitant]
     Active Substance: ATORVASTATIN CALCIUM
  27. CYCLOBENZAPRINE. [Concomitant]
     Active Substance: CYCLOBENZAPRINE
  28. LIDOCAINE. [Concomitant]
     Active Substance: LIDOCAINE
  29. SUSTIVA [Concomitant]
     Active Substance: EFAVIRENZ
  30. VIRAMUNE [Concomitant]
     Active Substance: NEVIRAPINE
  31. VICODIN [Concomitant]
     Active Substance: ACETAMINOPHEN\HYDROCODONE BITARTRATE
  32. OXYCODONE AND ACETAMINOPHEN [Concomitant]
     Active Substance: ACETAMINOPHEN\OXYCODONE HYDROCHLORIDE
  33. CIPROFLOXACIN. [Concomitant]
     Active Substance: CIPROFLOXACIN
  34. VIAGRA [Concomitant]
     Active Substance: SILDENAFIL CITRATE
  35. TRUVADA [Suspect]
     Active Substance: EMTRICITABINE\TENOFOVIR DISOPROXIL FUMARATE
     Indication: HIV INFECTION
     Dosage: UNK
     Route: 048
     Dates: start: 200706, end: 201608
  36. COMBIVIR [Concomitant]
     Active Substance: LAMIVUDINE\ZIDOVUDINE
  37. AMOX [AMOXICILLIN] [Concomitant]
     Active Substance: AMOXICILLIN
  38. ATORVASTATIN [Concomitant]
     Active Substance: ATORVASTATIN
  39. MECLIZINE [Concomitant]
     Active Substance: MECLIZINE HYDROCHLORIDE
  40. VIREAD [Suspect]
     Active Substance: TENOFOVIR DISOPROXIL FUMARATE
     Indication: HIV INFECTION
     Dosage: UNK
     Route: 048
     Dates: start: 2001, end: 200705
  41. CALCIUM [Concomitant]
     Active Substance: CALCIUM
  42. DESCOVY [Concomitant]
     Active Substance: EMTRICITABINE\TENOFOVIR ALAFENAMIDE FUMARATE
  43. TRAMADOL. [Concomitant]
     Active Substance: TRAMADOL
  44. DOXYCYCLINE HYCLATE. [Concomitant]
     Active Substance: DOXYCYCLINE HYCLATE

REACTIONS (9)
  - Economic problem [Not Recovered/Not Resolved]
  - Anxiety [Not Recovered/Not Resolved]
  - Anhedonia [Not Recovered/Not Resolved]
  - Osteopenia [Not Recovered/Not Resolved]
  - Fear [Not Recovered/Not Resolved]
  - Osteoporosis [Unknown]
  - Pain [Not Recovered/Not Resolved]
  - Emotional distress [Not Recovered/Not Resolved]
  - Stress [Not Recovered/Not Resolved]

NARRATIVE: CASE EVENT DATE: 20090119
